FAERS Safety Report 10181674 (Version 2)
Quarter: 2014Q2

REPORT INFORMATION
  Report Type: Report from Study
  Country: US (occurrence: US)
  Receive Date: 20140519
  Receipt Date: 20140611
  Transmission Date: 20141212
  Serious: Yes (Hospitalization)
  Sender: FDA-Public Use
  Company Number: US-ACTELION-A-US2014-98773

PATIENT
  Age: 58 Year
  Sex: Female

DRUGS (1)
  1. MACITENTAN [Suspect]
     Indication: PULMONARY ARTERIAL HYPERTENSION
     Dosage: UNK
     Route: 048
     Dates: start: 20140108, end: 201404

REACTIONS (5)
  - Skin discolouration [Recovering/Resolving]
  - Blister [Recovering/Resolving]
  - Wound secretion [Recovering/Resolving]
  - Oedema [Recovering/Resolving]
  - Peripheral swelling [Recovering/Resolving]
